FAERS Safety Report 20127270 (Version 1)
Quarter: 2021Q4

REPORT INFORMATION
  Report Type: Spontaneous
  Country: CA (occurrence: CA)
  Receive Date: 20211129
  Receipt Date: 20211129
  Transmission Date: 20220303
  Serious: Yes (Life-Threatening)
  Sender: FDA-Public Use
  Company Number: CA-TEVA-2021-CA-1981789

PATIENT
  Age: 73 Year
  Sex: Male

DRUGS (2)
  1. PREDNISONE [Suspect]
     Active Substance: PREDNISONE
     Indication: Visual impairment
     Dates: start: 20211013
  2. PREDNISONE [Suspect]
     Active Substance: PREDNISONE
     Dates: start: 20211017

REACTIONS (3)
  - Hyperglycaemic hyperosmolar nonketotic syndrome [Unknown]
  - Ageusia [Unknown]
  - Therapeutic product ineffective [Unknown]

NARRATIVE: CASE EVENT DATE: 20210101
